FAERS Safety Report 8299269-5 (Version None)
Quarter: 2012Q2

REPORT INFORMATION
  Report Type: 
  Country: None (occurrence: None)
  Receive Date: 20120419
  Receipt Date: 20120417
  Transmission Date: 20120825
  Serious: Yes (Other)
  Sender: FDA-Public Use
  Company Number: US-PFIZER INC-2011090608

PATIENT
  Sex: Female

DRUGS (2)
  1. GEODON [Suspect]
     Indication: BIPOLAR DISORDER
     Dosage: 80 MG, 2X/DAY
     Route: 048
  2. PRISTIQ [Suspect]
     Indication: BIPOLAR DISORDER
     Dosage: 100 MG, 1X/DAY (Q AM)
     Route: 048

REACTIONS (2)
  - DISABILITY [None]
  - SUICIDAL IDEATION [None]
